FAERS Safety Report 16628860 (Version 2)
Quarter: 2019Q3

REPORT INFORMATION
  Report Type: Spontaneous
  Country: US (occurrence: US)
  Receive Date: 20190725
  Receipt Date: 20190807
  Transmission Date: 20191004
  Serious: No
  Sender: FDA-Public Use
  Company Number: US-GILEAD-2019-0419881

PATIENT
  Age: 61 Year
  Sex: Female
  Weight: 56.69 kg

DRUGS (1)
  1. VOSEVI [Suspect]
     Active Substance: SOFOSBUVIR\VELPATASVIR\VOXILAPREVIR
     Indication: CHRONIC HEPATITIS C
     Dosage: 1 DOSAGE FORM (400/100MG)
     Route: 048
     Dates: start: 20171016, end: 20180105

REACTIONS (1)
  - Alopecia [Not Recovered/Not Resolved]

NARRATIVE: CASE EVENT DATE: 201711
